FAERS Safety Report 5798684-9 (Version None)
Quarter: 2008Q2

REPORT INFORMATION
  Report Type: 
  Country: None (occurrence: None)
  Receive Date: 20080630
  Receipt Date: 20080618
  Transmission Date: 20081010
  Serious: Yes (Disabling, Other)
  Sender: FDA-Public Use
  Company Number: 2008AL007440

PATIENT
  Age: 32 Year
  Sex: Male

DRUGS (4)
  1. TRAMADOL HCL [Suspect]
     Indication: PERINEAL ABSCESS
     Dosage: PRN; PO
     Route: 048
     Dates: start: 20070123, end: 20080522
  2. OMEPRAZOLE [Concomitant]
  3. MAGNAPEN [Concomitant]
  4. METRONIDAZOLE HCL [Concomitant]

REACTIONS (3)
  - EPILEPSY [None]
  - LOSS OF EMPLOYMENT [None]
  - UPPER LIMB FRACTURE [None]
